FAERS Safety Report 9213442 (Version 2)
Quarter: 2014Q4

REPORT INFORMATION
  Report Type: Spontaneous
  Country: IT (occurrence: IT)
  Receive Date: 20130405
  Receipt Date: 20141116
  Transmission Date: 20150529
  Serious: Yes (Disabling)
  Sender: FDA-Public Use
  Company Number: IT-009507513-1302ITA002760

PATIENT
  Age: 87 Year
  Sex: Male

DRUGS (4)
  1. MOBIC [Concomitant]
     Active Substance: MELOXICAM
     Indication: TOOTHACHE
     Dosage: UNK
     Route: 048
     Dates: start: 201212, end: 201301
  2. NATRILIX [Concomitant]
     Active Substance: INDAPAMIDE
     Route: 048
  3. TIKLID [Concomitant]
     Active Substance: TICLOPIDINE HYDROCHLORIDE
  4. FOSAVANCE [Suspect]
     Active Substance: ALENDRONATE SODIUM\CHOLECALCIFEROL
     Indication: OSTEOPOROSIS
     Dosage: WEEKLY
     Route: 048
     Dates: start: 20050701, end: 20130123

REACTIONS (1)
  - Osteonecrosis [Unknown]

NARRATIVE: CASE EVENT DATE: 20121015
